FAERS Safety Report 15030287 (Version 1)
Quarter: 2018Q2

REPORT INFORMATION
  Report Type: Spontaneous
  Country: DE (occurrence: DE)
  Receive Date: 20180619
  Receipt Date: 20180619
  Transmission Date: 20180711
  Serious: Yes (Hospitalization)
  Sender: FDA-Public Use
  Company Number: DE-PFIZER INC-2018242652

PATIENT
  Age: 38 Year
  Sex: Male

DRUGS (6)
  1. CANDESARTAN CILEXETIL AND HYDROCHLOROTHIAZIDE [Concomitant]
     Active Substance: CANDESARTAN CILEXETIL\HYDROCHLOROTHIAZIDE
     Dosage: 16|12.5 MG, 1-0-0-0
  2. ATORVASTATIN CALCIUM. [Suspect]
     Active Substance: ATORVASTATIN CALCIUM
     Dosage: AT NK MG
  3. OMEPRAZOL [Interacting]
     Active Substance: OMEPRAZOLE
     Dosage: NK MG, NK
  4. BISOPROLOL [Concomitant]
     Active Substance: BISOPROLOL
     Dosage: 5 MG, 1-0-0-0
  5. TAMSULOSIN [Concomitant]
     Active Substance: TAMSULOSIN
     Dosage: 0.4 MG, 1-0-0-0
  6. CICLOSPORIN [Interacting]
     Active Substance: CYCLOSPORINE
     Dosage: 125 MG, 1-0-1-0, MEDICATION ERROR

REACTIONS (6)
  - Labelled drug-drug interaction medication error [Unknown]
  - Abdominal pain [Unknown]
  - Drug prescribing error [Unknown]
  - Acute kidney injury [Unknown]
  - Medication monitoring error [Unknown]
  - Chest pain [Unknown]
